FAERS Safety Report 4833889-2 (Version None)
Quarter: 2005Q4

REPORT INFORMATION
  Report Type: 
  Country: None (occurrence: None)
  Receive Date: 20051122
  Receipt Date: 20031119
  Transmission Date: 20060501
  Serious: Yes (Hospitalization)
  Sender: FDA-Public Use
  Company Number: AR-BOEHRINGER INGELHEIM PHARM. INC.-2003-BP-09823BP

PATIENT
  Sex: Male
  Weight: 85 kg

DRUGS (8)
  1. MICARDIS [Suspect]
     Indication: CARDIOVASCULAR DISORDER
     Route: 048
     Dates: start: 20030513, end: 20030901
  2. MICARDIS [Suspect]
     Indication: CEREBROVASCULAR ACCIDENT PROPHYLAXIS
  3. RAMIPRIL [Suspect]
     Indication: CARDIOVASCULAR DISORDER
     Route: 048
     Dates: start: 20030513, end: 20030901
  4. RAMIPRIL [Suspect]
     Indication: CEREBROVASCULAR ACCIDENT PROPHYLAXIS
  5. INSULIN [Concomitant]
  6. AMLODIPINE [Concomitant]
  7. ASPIRIN [Concomitant]
  8. FUROSEMIDE [Concomitant]

REACTIONS (1)
  - HYPERKALAEMIA [None]
